FAERS Safety Report 9804475 (Version 2)
Quarter: 2014Q1

REPORT INFORMATION
  Report Type: Spontaneous
  Country: US (occurrence: US)
  Receive Date: 20140108
  Receipt Date: 20140129
  Transmission Date: 20141002
  Serious: Yes (Other)
  Sender: FDA-Public Use
  Company Number: US-TEVA-454434USA

PATIENT
  Sex: Female
  Weight: 63.56 kg

DRUGS (2)
  1. FENTORA [Suspect]
     Indication: PAIN
  2. FENTORA [Suspect]
     Dosage: UP TO 4 TABLETS

REACTIONS (7)
  - Chemical burn of gastrointestinal tract [Unknown]
  - Stomatitis [Unknown]
  - Drug ineffective for unapproved indication [Not Recovered/Not Resolved]
  - Malaise [Not Recovered/Not Resolved]
  - Off label use [Unknown]
  - Product physical issue [Unknown]
  - Poor quality drug administered [Unknown]
